FAERS Safety Report 4297593-4 (Version None)
Quarter: 2004Q1

REPORT INFORMATION
  Report Type: 
  Country: None (occurrence: None)
  Receive Date: 20040126
  Receipt Date: 20031104
  Transmission Date: 20041129
  Serious: No
  Sender: FDA-Public Use
  Company Number: USA031151648

PATIENT
  Age: 5 Year
  Sex: Male
  Weight: 20 kg

DRUGS (2)
  1. STRATTERA [Suspect]
     Indication: ATTENTION DEFICIT/HYPERACTIVITY DISORDER
     Dosage: 25 MG
     Dates: start: 20031001
  2. STRATTERA [Suspect]
     Indication: AUTISM
     Dosage: 25 MG
     Dates: start: 20031001

REACTIONS (3)
  - EYE IRRITATION [None]
  - MYDRIASIS [None]
  - VISUAL DISTURBANCE [None]
